FAERS Safety Report 6595101-6 (Version None)
Quarter: 2010Q1

REPORT INFORMATION
  Report Type: 
  Country: None (occurrence: None)
  Receive Date: 20100212
  Receipt Date: 20100203
  Transmission Date: 20100710
  Serious: Yes (Hospitalization, Other)
  Sender: FDA-Public Use
  Company Number: 2009SP039800

PATIENT
  Age: 35 Year
  Sex: Male

DRUGS (5)
  1. REMERON [Suspect]
     Indication: ANXIETY DISORDER
     Dosage: 15 MG; QD; PO
     Route: 048
  2. REMERON [Suspect]
     Indication: DEPRESSION
     Dosage: 15 MG; QD; PO
     Route: 048
  3. NOVALGIN (METAMIZOLE SODIUM) [Suspect]
     Indication: PAIN
     Dosage: 160 GTT; QD; PO
     Route: 048
  4. RISPERDAL [Suspect]
     Indication: ANXIETY DISORDER
     Dosage: 0.5 MG; BID; PO
     Route: 048
  5. RISPERDAL [Suspect]
     Indication: DEPRESSION
     Dosage: 0.5 MG; BID; PO
     Route: 048

REACTIONS (6)
  - ASPARTATE AMINOTRANSFERASE INCREASED [None]
  - BLOOD LACTATE DEHYDROGENASE INCREASED [None]
  - GENERAL PHYSICAL HEALTH DETERIORATION [None]
  - NECK PAIN [None]
  - NEUROLOGICAL EXAMINATION ABNORMAL [None]
  - RHABDOMYOLYSIS [None]
